FAERS Safety Report 18306379 (Version 7)
Quarter: 2023Q4

REPORT INFORMATION
  Report Type: Other
  Country: DE (occurrence: None)
  Receive Date: 20200923
  Receipt Date: 20231227
  Transmission Date: 20240110
  Serious: Yes (Hospitalization, Other)
  Sender: FDA-Public Use
  Company Number: DE-ROCHE-2177964

PATIENT
  Age: 60 Year
  Sex: Female

DRUGS (13)
  1. OCREVUS [Suspect]
     Active Substance: OCRELIZUMAB
     Indication: Primary progressive multiple sclerosis
     Dosage: 600 MG: 245 DAYS
     Route: 042
     Dates: start: 20180213
  2. OCREVUS [Suspect]
     Active Substance: OCRELIZUMAB
     Dosage: 3RD INFUSION
     Route: 042
     Dates: start: 20180814
  3. OCREVUS [Suspect]
     Active Substance: OCRELIZUMAB
     Dosage: NEXT DOE RECEIVED ON 28/FEB/2020
     Route: 042
     Dates: start: 20190212
  4. OCREVUS [Suspect]
     Active Substance: OCRELIZUMAB
     Route: 042
     Dates: start: 20200919
  5. TIZANIDINE HYDROCHLORIDE [Concomitant]
     Active Substance: TIZANIDINE HYDROCHLORIDE
  6. DALFAMPRIDINE [Concomitant]
     Active Substance: DALFAMPRIDINE
  7. VITAMIN D3 [Concomitant]
     Active Substance: CHOLECALCIFEROL
  8. DULOXETINE [Concomitant]
     Active Substance: DULOXETINE
  9. VENLAFAXINE HYDROCHLORIDE [Concomitant]
     Active Substance: VENLAFAXINE HYDROCHLORIDE
  10. VALDOXAN [Concomitant]
     Active Substance: AGOMELATINE
  11. PRAMIPEXOLE [Concomitant]
     Active Substance: PRAMIPEXOLE
  12. METHYLPREDNISOLONE [Concomitant]
     Active Substance: METHYLPREDNISOLONE
     Indication: Premedication
  13. DIMETHINDENE [Concomitant]
     Active Substance: DIMETHINDENE
     Indication: Premedication

REACTIONS (15)
  - Psoriatic arthropathy [Not Recovered/Not Resolved]
  - Radius fracture [Recovered/Resolved]
  - Spinal pain [Recovered/Resolved]
  - Fatigue [Recovered/Resolved]
  - Eye irritation [Recovered/Resolved]
  - Rash [Recovered/Resolved]
  - Onychomycosis [Not Recovered/Not Resolved]
  - Nasopharyngitis [Recovered/Resolved]
  - Sinusitis [Recovered/Resolved]
  - Body temperature increased [Recovered/Resolved]
  - Onychomadesis [Not Recovered/Not Resolved]
  - Wound complication [Recovered/Resolved]
  - Hypoaesthesia [Recovered/Resolved]
  - Peroneal nerve palsy [Recovering/Resolving]
  - Pain in extremity [Not Recovered/Not Resolved]

NARRATIVE: CASE EVENT DATE: 20180814
